FAERS Safety Report 4818906-8 (Version None)
Quarter: 2005Q4

REPORT INFORMATION
  Report Type: 
  Country: None (occurrence: None)
  Receive Date: 20051101
  Receipt Date: 20051024
  Transmission Date: 20060501
  Serious: Yes (Death)
  Sender: FDA-Public Use
  Company Number: 2005126483

PATIENT
  Age: 81 Year
  Sex: Male
  Weight: 67 kg

DRUGS (11)
  1. LYRICA [Suspect]
     Indication: POST HERPETIC NEURALGIA
     Dosage: 150 MG (50 MG, 3 IN 1 D), ORAL
     Route: 048
     Dates: start: 20050819, end: 20050822
  2. SPIRONOLACTONE (SPIRONOLACONE) [Concomitant]
  3. MONOMAX (ISOSORBIDE MONONITRATE) [Concomitant]
  4. BENDROFLUMETHIAZIDE (BENROFLUMETHIAZIDE) [Concomitant]
  5. LISINOPRIL [Concomitant]
  6. DIGOXIN [Concomitant]
  7. TEMAZEPAM [Concomitant]
  8. FRUSEMIDE (FRUSEMIDE) [Concomitant]
  9. MST CONTINUS ^ASTA MEDICA^ (MORPHINE SULFATE) [Concomitant]
  10. WARFARIN SODIUM [Concomitant]
  11. AMIODARONE HCL [Concomitant]

REACTIONS (4)
  - COORDINATION ABNORMAL [None]
  - MALAISE [None]
  - MENTAL IMPAIRMENT [None]
  - NERVOUS SYSTEM DISORDER [None]
